FAERS Safety Report 6306281-1 (Version None)
Quarter: 2009Q3

REPORT INFORMATION
  Report Type: 
  Country: None (occurrence: None)
  Receive Date: 20090812
  Receipt Date: 20090810
  Transmission Date: 20100115
  Serious: Yes (Death)
  Sender: FDA-Public Use
  Company Number: PHEH2009US08713

PATIENT
  Sex: Female

DRUGS (5)
  1. ZOMETA [Suspect]
     Indication: BREAST CANCER STAGE III
     Dosage: 4MG/5ML
     Route: 042
     Dates: start: 20090115
  2. XELODA [Suspect]
     Indication: BREAST CANCER
     Dosage: UNK, UNK
     Route: 065
  3. AVASTIN [Suspect]
     Indication: BREAST CANCER
     Dosage: UNK, UNK
     Route: 065
  4. CHEMOTHERAPEUTICS NOS [Suspect]
     Indication: BREAST CANCER
     Dosage: UNK, UNK
     Route: 065
  5. RADIATION THERAPY [Suspect]
     Indication: BREAST CANCER
     Dosage: UNK, UNK
     Route: 065

REACTIONS (2)
  - BREAST CANCER METASTATIC [None]
  - MALIGNANT NEOPLASM PROGRESSION [None]
